FAERS Safety Report 6189623-X (Version None)
Quarter: 2009Q2

REPORT INFORMATION
  Report Type: 
  Country: None (occurrence: None)
  Receive Date: 20090514
  Receipt Date: 20090511
  Transmission Date: 20091009
  Serious: Yes (Death)
  Sender: FDA-Public Use
  Company Number: CN-BAYER-200918523GPV

PATIENT
  Age: 62 Year
  Sex: Male

DRUGS (1)
  1. GADOPENTETIC ACID DIMEGLUMINE [Suspect]
     Indication: NUCLEAR MAGNETIC RESONANCE IMAGING ABDOMINAL
     Route: 042
     Dates: start: 20070530, end: 20070530

REACTIONS (12)
  - ANAPHYLACTIC SHOCK [None]
  - CHEST DISCOMFORT [None]
  - COMA [None]
  - CONVULSION [None]
  - COUGH [None]
  - CYANOSIS [None]
  - FOAMING AT MOUTH [None]
  - GRAND MAL CONVULSION [None]
  - HYPOXIC ENCEPHALOPATHY [None]
  - LARYNGEAL OEDEMA [None]
  - LOSS OF CONSCIOUSNESS [None]
  - RESPIRATORY DISTRESS [None]
